FAERS Safety Report 8857280 (Version 2)
Quarter: 2014Q4

REPORT INFORMATION
  Report Type: Report from Study
  Country: US (occurrence: US)
  Receive Date: 20121024
  Receipt Date: 20141113
  Transmission Date: 20150529
  Serious: Yes (Other)
  Sender: FDA-Public Use
  Company Number: US-BIOGENIDEC-2012BI045786

PATIENT
  Age: 54 Year
  Sex: Female

DRUGS (2)
  1. AVONEX [Suspect]
     Active Substance: INTERFERON BETA-1A
     Indication: MULTIPLE SCLEROSIS
     Route: 030
     Dates: start: 20120703, end: 20121012
  2. AVONEX [Suspect]
     Active Substance: INTERFERON BETA-1A
     Indication: MULTIPLE SCLEROSIS
     Route: 030
     Dates: start: 20121026, end: 20130906

REACTIONS (6)
  - Suicidal ideation [Recovered/Resolved]
  - Coeliac disease [Not Recovered/Not Resolved]
  - Crying [Recovered/Resolved]
  - Fatigue [Unknown]
  - Depression [Recovered/Resolved]
  - General symptom [Unknown]

NARRATIVE: CASE EVENT DATE: 201207
